FAERS Safety Report 5413428-8 (Version None)
Quarter: 2007Q3

REPORT INFORMATION
  Report Type: 
  Country: None (occurrence: None)
  Receive Date: 20070810
  Receipt Date: 20070726
  Transmission Date: 20080115
  Serious: No
  Sender: FDA-Public Use
  Company Number: 2007JP001263

PATIENT
  Age: 10 Year
  Sex: Female
  Weight: 41 kg

DRUGS (1)
  1. PROGRAF [Suspect]
     Indication: DERMATITIS ATOPIC
     Dosage: 0.03%, TOPICAL
     Route: 061
     Dates: start: 20060329, end: 20060530

REACTIONS (2)
  - ACNE [None]
  - SKIN PAPILLOMA [None]
